FAERS Safety Report 7752688-5 (Version None)
Quarter: 2011Q3

REPORT INFORMATION
  Report Type: 
  Country: None (occurrence: None)
  Receive Date: 20110915
  Receipt Date: 20110908
  Transmission Date: 20111222
  Serious: Yes (Other)
  Sender: FDA-Public Use
  Company Number: GR-PFIZER INC-2011213247

PATIENT
  Age: 54 Year
  Sex: Female

DRUGS (1)
  1. LYRICA [Suspect]
     Dosage: 75 MG, 2X/DAY (IN THE MORNING AND IN THE AFTERNOON)
     Dates: start: 20110630, end: 20110702

REACTIONS (28)
  - INTESTINAL HAEMORRHAGE [None]
  - MAJOR DEPRESSION [None]
  - BLOOD GLUCOSE INCREASED [None]
  - EPISTAXIS [None]
  - JOINT SWELLING [None]
  - MUSCULAR WEAKNESS [None]
  - RESTLESSNESS [None]
  - MUSCLE SPASMS [None]
  - HYPERSENSITIVITY [None]
  - APHASIA [None]
  - BLOOD SODIUM DECREASED [None]
  - PYREXIA [None]
  - BLOOD CREATINE PHOSPHOKINASE INCREASED [None]
  - DECREASED APPETITE [None]
  - THIRST [None]
  - INSOMNIA [None]
  - PRURITUS [None]
  - OBSESSIVE THOUGHTS [None]
  - AMNESIA [None]
  - CONSTIPATION [None]
  - FLUID RETENTION [None]
  - TACHYCARDIA [None]
  - SLEEP TALKING [None]
  - URINE OUTPUT DECREASED [None]
  - CHEST DISCOMFORT [None]
  - SWELLING FACE [None]
  - HYPOREFLEXIA [None]
  - ALOPECIA [None]
